FAERS Safety Report 7257545-9 (Version None)
Quarter: 2011Q1

REPORT INFORMATION
  Report Type: 
  Country: None (occurrence: None)
  Receive Date: 20110129
  Receipt Date: 20100518
  Transmission Date: 20110831
  Serious: No
  Sender: FDA-Public Use
  Company Number: US-ABBOTT-10P-163-0646682-00

PATIENT
  Sex: Female

DRUGS (13)
  1. LYRICA [Concomitant]
     Indication: FIBROMYALGIA
  2. CALCIUM SUPPLEMENT [Concomitant]
     Indication: MINERAL SUPPLEMENTATION
  3. METHOTREXATE [Concomitant]
     Indication: RHEUMATOID ARTHRITIS
  4. FOLIC ACID [Concomitant]
     Indication: VITAMIN SUPPLEMENTATION
  5. LYRICA [Concomitant]
  6. HUMALOG [Concomitant]
     Indication: DIABETES MELLITUS
     Dosage: 2-5 UNITS
     Route: 058
  7. VITAMIN D [Concomitant]
     Indication: VITAMIN SUPPLEMENTATION
  8. METFORMIN [Concomitant]
     Indication: DIABETES MELLITUS
  9. HUMIRA [Suspect]
     Indication: RHEUMATOID ARTHRITIS
     Route: 050
     Dates: start: 20100501
  10. LANTUS [Concomitant]
     Indication: DIABETES MELLITUS
     Dosage: AT BED TIME
     Route: 058
  11. UNKNOWN MEDICATION [Concomitant]
     Indication: BLOOD CHOLESTEROL INCREASED
  12. ASCORBIC ACID [Concomitant]
     Indication: VITAMIN SUPPLEMENTATION
  13. PREDNISONE [Concomitant]
     Indication: RHEUMATOID ARTHRITIS
     Dosage: VARYING DOSES. CURRENTLY ON 5MG DAILY

REACTIONS (5)
  - TREMOR [None]
  - NERVOUSNESS [None]
  - BLOOD GLUCOSE INCREASED [None]
  - MUSCULAR WEAKNESS [None]
  - VISION BLURRED [None]
